FAERS Safety Report 23345494 (Version 3)
Quarter: 2025Q1

REPORT INFORMATION
  Report Type: Spontaneous
  Country: GR (occurrence: GR)
  Receive Date: 20231228
  Receipt Date: 20250115
  Transmission Date: 20250409
  Serious: Yes (Other)
  Sender: MYLAN
  Company Number: GR-MYLANLABS-2023M1129583

PATIENT
  Age: 78 Year
  Sex: Male

DRUGS (23)
  1. VANCOMYCIN [Suspect]
     Active Substance: VANCOMYCIN
     Indication: Fungal infection
     Route: 065
  2. VANCOMYCIN [Suspect]
     Active Substance: VANCOMYCIN
     Indication: Endophthalmitis
  3. VANCOMYCIN [Suspect]
     Active Substance: VANCOMYCIN
     Indication: Keratitis fungal
  4. MOXIFLOXACIN [Suspect]
     Active Substance: MOXIFLOXACIN
     Indication: Fungal infection
     Route: 042
  5. MOXIFLOXACIN [Suspect]
     Active Substance: MOXIFLOXACIN
     Indication: Endophthalmitis
  6. MOXIFLOXACIN [Suspect]
     Active Substance: MOXIFLOXACIN
     Indication: Keratitis fungal
  7. AMIKACIN [Suspect]
     Active Substance: AMIKACIN
     Indication: Endophthalmitis
  8. AMIKACIN [Suspect]
     Active Substance: AMIKACIN
     Indication: Fungal infection
  9. AMIKACIN [Suspect]
     Active Substance: AMIKACIN
     Indication: Keratitis fungal
  10. AMPHOTERICIN B [Suspect]
     Active Substance: AMPHOTERICIN B
     Indication: Endophthalmitis
     Route: 042
  11. AMPHOTERICIN B [Suspect]
     Active Substance: AMPHOTERICIN B
     Indication: Fungal infection
  12. AMPHOTERICIN B [Suspect]
     Active Substance: AMPHOTERICIN B
     Indication: Keratitis fungal
  13. ISAVUCONAZOLE [Suspect]
     Active Substance: ISAVUCONAZOLE
     Indication: Endophthalmitis
     Route: 042
  14. ISAVUCONAZOLE [Suspect]
     Active Substance: ISAVUCONAZOLE
     Indication: Fungal infection
  15. ISAVUCONAZOLE [Suspect]
     Active Substance: ISAVUCONAZOLE
     Indication: Keratitis
  16. VORICONAZOLE [Suspect]
     Active Substance: VORICONAZOLE
     Indication: Endophthalmitis
  17. VORICONAZOLE [Suspect]
     Active Substance: VORICONAZOLE
     Indication: Fungal infection
     Route: 042
  18. VORICONAZOLE [Suspect]
     Active Substance: VORICONAZOLE
     Indication: Keratitis fungal
  19. AMIKACIN [Suspect]
     Active Substance: AMIKACIN
     Indication: Endophthalmitis
     Route: 061
  20. AMIKACIN [Suspect]
     Active Substance: AMIKACIN
     Indication: Fungal infection
  21. VORICONAZOLE [Suspect]
     Active Substance: VORICONAZOLE
     Indication: Endophthalmitis
     Route: 061
  22. VORICONAZOLE [Suspect]
     Active Substance: VORICONAZOLE
     Indication: Fungal infection
  23. VORICONAZOLE [Suspect]
     Active Substance: VORICONAZOLE
     Indication: Keratitis fungal

REACTIONS (3)
  - Condition aggravated [Not Recovered/Not Resolved]
  - Drug ineffective for unapproved indication [Not Recovered/Not Resolved]
  - Off label use [Unknown]
